FAERS Safety Report 15714129 (Version 1)
Quarter: 2018Q4

REPORT INFORMATION
  Report Type: Spontaneous
  Country: US (occurrence: US)
  Receive Date: 20181212
  Receipt Date: 20181212
  Transmission Date: 20190205
  Serious: No
  Sender: FDA-Public Use
  Company Number: US-ENDO PHARMACEUTICALS INC-2018-042611

PATIENT
  Sex: Male

DRUGS (2)
  1. TESTIM [Suspect]
     Active Substance: TESTOSTERONE
     Dosage: ONE-HALF TUBE (25 MG), DAILY
     Route: 061
  2. TESTIM [Suspect]
     Active Substance: TESTOSTERONE
     Indication: BLOOD TESTOSTERONE DECREASED
     Dosage: ONE-THIRD TUBE (16.6 MG), DAILY
     Route: 061

REACTIONS (3)
  - Prescribed underdose [Not Recovered/Not Resolved]
  - Product physical consistency issue [Recovered/Resolved]
  - Product quality issue [Recovered/Resolved]
